FAERS Safety Report 18415270 (Version 2)
Quarter: 2020Q4

REPORT INFORMATION
  Report Type: Spontaneous
  Country: LU (occurrence: LU)
  Receive Date: 20201022
  Receipt Date: 20201026
  Transmission Date: 20210114
  Serious: Yes (Life-Threatening, Hospitalization)
  Sender: FDA-Public Use
  Company Number: NVSC2020LU282557

PATIENT
  Age: 51 Year
  Sex: Male
  Weight: 71 kg

DRUGS (20)
  1. CARBOPLATIN. [Suspect]
     Active Substance: CARBOPLATIN
     Indication: NON-SMALL CELL LUNG CANCER
     Dosage: UNK
     Route: 042
     Dates: start: 201902
  2. FENTANYL. [Concomitant]
     Active Substance: FENTANYL
     Indication: PAIN
     Dosage: UNK, CYCLIC
     Route: 048
     Dates: start: 20190305, end: 20190313
  3. AVELUMAB [Concomitant]
     Active Substance: AVELUMAB
     Indication: NON-SMALL CELL LUNG CANCER
     Dosage: 10 MG/KG (10 MG/KG, CYCLIC (EVERY 2 WEEKS))
     Route: 042
     Dates: start: 20181025, end: 20190212
  4. ZOFRAN [Concomitant]
     Active Substance: ONDANSETRON HYDROCHLORIDE
     Indication: NAUSEA
  5. PALBOCICLIB [Concomitant]
     Active Substance: PALBOCICLIB
     Indication: NON-SMALL CELL LUNG CANCER
     Dosage: 75 MG, QD
     Route: 048
     Dates: start: 20181102, end: 20190212
  6. ZOFRAN [Concomitant]
     Active Substance: ONDANSETRON HYDROCHLORIDE
     Indication: PROPHYLAXIS
     Dosage: UNK (UNK, 2X/DAY (2 TIMES PER DAY FOR 3 DAYS, IN CASE OF NAUSEA)
     Route: 048
     Dates: start: 20190314
  7. MOVICOL [Concomitant]
     Active Substance: POLYETHYLENE GLYCOL 3350\POTASSIUM CHLORIDE\SODIUM BICARBONATE\SODIUM CHLORIDE
     Indication: PROPHYLAXIS
     Dosage: UNK ((1 BAGPOWDER) FOR 1 MONTH)
     Route: 048
     Dates: start: 20180801
  8. FORTECORTIN [Concomitant]
     Active Substance: DEXAMETHASONE
     Indication: ANTIINFLAMMATORY THERAPY
     Dosage: 8 MG, QD (8 MG, QD  (1-0-0-0 FOR 1 MONTH))
     Route: 048
     Dates: start: 20190314
  9. PARACETAMOL [Concomitant]
     Active Substance: ACETAMINOPHEN
     Indication: ANALGESIC THERAPY
     Dosage: 3 G, QD (1 G, 3X/DAY (IF NECESSARY FOR 1 MONTH))
     Route: 048
     Dates: start: 20190314
  10. VALTRAN [Concomitant]
     Active Substance: NALOXONE HYDROCHLORIDE\TILIDINE HYDROCHLORIDE
     Indication: PAIN
     Dosage: 20 DROP (20 GTT, (MAXIMUM 60 DROPS, FOR 1 MONTH, 50MG/4MG)/0.72 ML ORAL SOLUTION (L0ML)
     Route: 048
     Dates: start: 20190314
  11. AXITINIB [Concomitant]
     Active Substance: AXITINIB
     Indication: NON-SMALL CELL LUNG CANCER
     Dosage: 10 MG, QD (5 MG, 2X/DAY)
     Route: 048
     Dates: start: 20181025, end: 20190212
  12. MATRIFEN [Concomitant]
     Active Substance: FENTANYL
     Indication: PAIN
     Dosage: UNK UNK, CYCLIC (75 UG/HR (FOR 3 WEEKS)
     Route: 062
     Dates: start: 20190314
  13. MEGACE [Concomitant]
     Active Substance: MEGESTROL ACETATE
     Indication: APPETITE DISORDER
     Dosage: UNK UNK, 2X/DAY (1-0-1-0 FOR 1 MONTH)
     Route: 048
     Dates: start: 20190314
  14. DUROGESIC [Concomitant]
     Active Substance: FENTANYL
     Indication: PAIN
     Dosage: UNK, CYCLIC (UNK UNK, CYCLIC (UNK (50 UG/HR (FOR 3 WEEKS))
     Route: 062
     Dates: start: 20190305, end: 20190313
  15. FOLAVIT [Concomitant]
     Active Substance: FOLIC ACID
     Indication: MYOCARDIAL INFARCTION
     Dosage: 4 MG, QD (4 MG, 1X/DAY (1-0-0-0 FOR 3 MONTH)))
     Route: 048
     Dates: start: 20190314
  16. DOCETAXEL. [Suspect]
     Active Substance: DOCETAXEL
     Indication: NON-SMALL CELL LUNG CANCER
     Dosage: UNK
     Route: 042
     Dates: start: 201902
  17. PANTOMED [Concomitant]
     Indication: GASTRODUODENAL ULCER
     Dosage: 20 MG, QD (20 MG, 1X/DAY (1-0-0-0 FOR 1 MONTH)  )
     Route: 048
     Dates: start: 20190304
  18. TEMESTA [Concomitant]
     Indication: ANXIOLYTIC THERAPY
     Dosage: 1 MG, QD (1 MG, QD (0-0-0-1 FOR 1 MONTH))
     Route: 048
     Dates: start: 20190314
  19. INLYTA [Concomitant]
     Active Substance: AXITINIB
     Indication: NON-SMALL CELL LUNG CANCER
     Dosage: 10 MG, QD (5 MG, 2X/DAY ((5MGX2, 10MG,ORAL, TWICE DAILY))
     Route: 048
     Dates: start: 20181025, end: 20190212
  20. IBRANCE [Concomitant]
     Active Substance: PALBOCICLIB
     Indication: NON-SMALL CELL LUNG CANCER
     Dosage: 75 MG, QD (75 MG, 1X/DAY)
     Route: 048
     Dates: start: 20181102, end: 20190212

REACTIONS (1)
  - Anaemia [Recovered/Resolved]

NARRATIVE: CASE EVENT DATE: 20190311
